FAERS Safety Report 5320123-2 (Version None)
Quarter: 2007Q2

REPORT INFORMATION
  Report Type: 
  Country: None (occurrence: None)
  Receive Date: 20070503
  Receipt Date: 20070425
  Transmission Date: 20071010
  Serious: Yes (Death, Hospitalization)
  Sender: FDA-Public Use
  Company Number: 163-20785-07020347

PATIENT
  Age: 63 Year
  Sex: Female

DRUGS (7)
  1. THALOMID [Suspect]
     Indication: MULTIPLE MYELOMA
     Dosage: 150 MG, 3 IN 1 D, ORAL
     Route: 048
     Dates: start: 20060726, end: 20061101
  2. COUMADIN [Suspect]
     Indication: DRUG USE FOR UNKNOWN INDICATION
     Dosage: SEE IMAGE
  3. DEMADEX [Concomitant]
  4. K-DUR 10 [Concomitant]
  5. COREG [Concomitant]
  6. ALDACTONE [Concomitant]
  7. ULTRAM [Concomitant]

REACTIONS (30)
  - ASPARTATE AMINOTRANSFERASE INCREASED [None]
  - BLOOD ALKALINE PHOSPHATASE INCREASED [None]
  - BLOOD CULTURE POSITIVE [None]
  - BLOOD GLUCOSE INCREASED [None]
  - BLOOD MAGNESIUM INCREASED [None]
  - BUNDLE BRANCH BLOCK RIGHT [None]
  - CARDIAC ARREST [None]
  - CARDIAC FAILURE CONGESTIVE [None]
  - CARDIOMEGALY [None]
  - CHEST X-RAY ABNORMAL [None]
  - CREATINE PHOSPHOKINASE DECREASED [None]
  - FIBRIN D DIMER INCREASED [None]
  - HAEMATOCRIT DECREASED [None]
  - HAEMOGLOBIN DECREASED [None]
  - HYPOTENSION [None]
  - INTERNATIONAL NORMALISED RATIO INCREASED [None]
  - MENTAL STATUS CHANGES [None]
  - NEUTROPHIL PERCENTAGE INCREASED [None]
  - PLATELET COUNT DECREASED [None]
  - PROTHROMBIN TIME PROLONGED [None]
  - QRS AXIS ABNORMAL [None]
  - RENAL FAILURE ACUTE [None]
  - SEPTIC SHOCK [None]
  - SINUS TACHYCARDIA [None]
  - STAPHYLOCOCCAL INFECTION [None]
  - SUBARACHNOID HAEMORRHAGE [None]
  - SUBDURAL HAEMATOMA [None]
  - SUBDURAL HAEMORRHAGE [None]
  - URINARY TRACT INFECTION [None]
  - WHITE BLOOD CELL COUNT INCREASED [None]
